FAERS Safety Report 14741341 (Version 2)
Quarter: 2018Q2

REPORT INFORMATION
  Report Type: Spontaneous
  Country: US (occurrence: US)
  Receive Date: 20180410
  Receipt Date: 20180422
  Transmission Date: 20180711
  Serious: Yes (Hospitalization)
  Sender: FDA-Public Use
  Company Number: US-APOTEX-2018AP010065

PATIENT
  Age: 36 Year
  Sex: Female

DRUGS (3)
  1. LITHIUM CARBONATE. [Suspect]
     Active Substance: LITHIUM CARBONATE
     Dosage: 300 MG, Q.H.S.
     Route: 065
  2. LITHIUM CARBONATE. [Suspect]
     Active Substance: LITHIUM CARBONATE
     Dosage: 450 UNK, UNK
     Route: 065
  3. LITHIUM CARBONATE. [Suspect]
     Active Substance: LITHIUM CARBONATE
     Indication: BIPOLAR DISORDER
     Dosage: 900 MG, Q.H.S.
     Route: 065

REACTIONS (8)
  - Visual impairment [Unknown]
  - Drug interaction [Unknown]
  - Tremor [Unknown]
  - Toxicity to various agents [Recovering/Resolving]
  - Dysgeusia [Unknown]
  - Lethargy [Unknown]
  - Drug level below therapeutic [Unknown]
  - Ataxia [Unknown]
